FAERS Safety Report 10065117 (Version 2)
Quarter: 2014Q2

REPORT INFORMATION
  Report Type: Spontaneous
  Country: GB (occurrence: GB)
  Receive Date: 20140408
  Receipt Date: 20140625
  Transmission Date: 20141212
  Serious: Yes (Other)
  Sender: FDA-Public Use
  Company Number: PHHY2014GB038268

PATIENT
  Age: 14 Year
  Sex: Female

DRUGS (9)
  1. LEVETIRACETAM [Suspect]
     Indication: EPILEPSY
     Dosage: 200 MG, BID
     Route: 048
     Dates: start: 201312, end: 20140114
  2. LEVETIRACETAM [Suspect]
     Dosage: 400 MG, BID
     Route: 048
     Dates: start: 20140114, end: 20140130
  3. LEVETIRACETAM [Suspect]
     Dosage: 600 MG, BID
     Route: 048
     Dates: start: 20140130
  4. LEVETIRACETAM [Suspect]
     Dosage: 4 ML, BID
     Route: 048
  5. LEVETIRACETAM [Suspect]
     Dosage: 6 ML, BID
     Route: 048
  6. LEVETIRACETAM [Suspect]
     Dosage: 5 ML, BID
     Route: 048
  7. CLONAZEPAM [Concomitant]
     Indication: PRODUCT USED FOR UNKNOWN INDICATION
     Route: 065
  8. RISPERIDONE [Concomitant]
     Indication: PRODUCT USED FOR UNKNOWN INDICATION
     Route: 065
  9. VIT D [Concomitant]
     Indication: PRODUCT USED FOR UNKNOWN INDICATION
     Route: 065

REACTIONS (8)
  - Screaming [Unknown]
  - Joint crepitation [Unknown]
  - Self injurious behaviour [Unknown]
  - Underdose [Unknown]
  - Anxiety [Unknown]
  - Convulsion [Unknown]
  - Aggression [Unknown]
  - Abnormal behaviour [Unknown]
